FAERS Safety Report 4462267-3 (Version None)
Quarter: 2004Q3

REPORT INFORMATION
  Report Type: 
  Country: None (occurrence: None)
  Receive Date: 20040928
  Receipt Date: 20040904
  Transmission Date: 20050211
  Serious: Yes (Hospitalization, Disabling)
  Sender: FDA-Public Use
  Company Number: DSA_24928_2004

PATIENT
  Age: 68 Year
  Sex: Male

DRUGS (2)
  1. NIFEDIPINE [Suspect]
     Indication: BLOOD PRESSURE INCREASED
     Dosage: 10 MG ONCE SL
     Route: 060
  2. NIFEDIPINE [Suspect]
     Indication: BLOOD PRESSURE INCREASED
     Dosage: 10 MG ONCE SL
     Route: 060

REACTIONS (5)
  - CEREBRAL INFARCTION [None]
  - HEART RATE INCREASED [None]
  - ISCHAEMIC STROKE [None]
  - RESPIRATORY RATE INCREASED [None]
  - VISION BLURRED [None]
